FAERS Safety Report 10908421 (Version 1)
Quarter: 2015Q1

REPORT INFORMATION
  Report Type: Spontaneous
  Country: AU (occurrence: AU)
  Receive Date: 20150312
  Receipt Date: 20150312
  Transmission Date: 20150721
  Serious: Yes (Other)
  Sender: FDA-Public Use
  Company Number: AU-MUNDIPHARMA DS AND PHARMACOVIGILANCE-GBR-2015-0026122

PATIENT
  Age: 84 Year
  Sex: Female

DRUGS (5)
  1. NORSPAN [Suspect]
     Active Substance: BUPRENORPHINE
     Dosage: 10 UNK, UNK
     Route: 062
  2. NORSPAN [Suspect]
     Active Substance: BUPRENORPHINE
     Indication: PRODUCT USED FOR UNKNOWN INDICATION
     Dosage: Q1
     Route: 062
     Dates: start: 201502
  3. WARFARIN [Concomitant]
     Active Substance: WARFARIN
  4. METOPROLOL [Concomitant]
     Active Substance: METOPROLOL
  5. MOGADON [Concomitant]
     Active Substance: NITRAZEPAM

REACTIONS (3)
  - Chest pain [Recovered/Resolved]
  - Cardiac failure [None]
  - Myocardial ischaemia [Unknown]
